FAERS Safety Report 11522198 (Version 1)
Quarter: 2015Q3

REPORT INFORMATION
  Report Type: Spontaneous
  Country: JP (occurrence: JP)
  Receive Date: 20150918
  Receipt Date: 20150918
  Transmission Date: 20151125
  Serious: Yes (Other)
  Sender: FDA-Public Use
  Company Number: JP-PFIZER INC-2015307404

PATIENT

DRUGS (3)
  1. ADALAT [Concomitant]
     Active Substance: NIFEDIPINE
  2. SELARA [Concomitant]
     Active Substance: EPLERENONE
  3. VFEND [Suspect]
     Active Substance: VORICONAZOLE
     Dosage: UNK

REACTIONS (1)
  - Shock [Unknown]

NARRATIVE: CASE EVENT DATE: 2000
